FAERS Safety Report 9144641 (Version 1)
Quarter: 2013Q1

REPORT INFORMATION
  Report Type: Spontaneous
  Country: FR (occurrence: FR)
  Receive Date: 20130306
  Receipt Date: 20130306
  Transmission Date: 20140127
  Serious: Yes (Other)
  Sender: FDA-Public Use
  Company Number: FR-ROCHE-1197561

PATIENT
  Age: 86 Year
  Sex: Female

DRUGS (7)
  1. LUCENTIS [Suspect]
     Indication: AGE-RELATED MACULAR DEGENERATION
     Route: 050
     Dates: start: 20120827
  2. LUCENTIS [Suspect]
     Route: 050
     Dates: start: 20121001, end: 20121001
  3. PREVISCAN [Concomitant]
  4. PARIET [Concomitant]
     Route: 065
  5. CARDENSIEL [Concomitant]
     Route: 065
  6. LEVOTHYROX [Concomitant]
     Route: 065
  7. HAVLANE [Concomitant]

REACTIONS (1)
  - Paraesthesia [Not Recovered/Not Resolved]
